FAERS Safety Report 21359355 (Version 5)
Quarter: 2022Q4

REPORT INFORMATION
  Report Type: Report from Study
  Country: US (occurrence: US)
  Receive Date: 20220921
  Receipt Date: 20221018
  Transmission Date: 20230112
  Serious: Yes (Hospitalization, Other)
  Sender: FDA-Public Use
  Company Number: US-ABBVIE-4127215

PATIENT
  Age: 74 Year
  Sex: Female

DRUGS (2)
  1. IMBRUVICA [Suspect]
     Active Substance: IBRUTINIB
     Indication: Lymphocytic leukaemia
     Route: 048
     Dates: start: 201905
  2. IMBRUVICA [Suspect]
     Active Substance: IBRUTINIB
     Indication: Lymphocytic leukaemia
     Route: 048

REACTIONS (7)
  - Surgery [Unknown]
  - Diarrhoea [Unknown]
  - Pneumonectomy [Unknown]
  - Urinary retention [Unknown]
  - Asthenia [Unknown]
  - Peripheral nerve injury [Unknown]
  - Hypertension [Unknown]

NARRATIVE: CASE EVENT DATE: 20220830
